FAERS Safety Report 11156832 (Version 2)
Quarter: 2015Q3

REPORT INFORMATION
  Report Type: Spontaneous
  Country: DE (occurrence: DE)
  Receive Date: 20150602
  Receipt Date: 20150707
  Transmission Date: 20151125
  Serious: Yes (Death, Hospitalization)
  Sender: FDA-Public Use
  Company Number: DE-OTSUKA-2015_002192

PATIENT
  Age: 73 Year
  Sex: Male
  Weight: 70 kg

DRUGS (5)
  1. DACOGEN [Suspect]
     Active Substance: DECITABINE
     Dosage: 35.6 MG, UNK
     Route: 042
     Dates: start: 20150504, end: 20150508
  2. HYDREA [Suspect]
     Active Substance: HYDROXYUREA
     Indication: CHRONIC MYELOMONOCYTIC LEUKAEMIA
     Dosage: 500 MG, UNK
     Route: 048
     Dates: start: 20141209, end: 20150111
  3. XARELTO [Concomitant]
     Active Substance: RIVAROXABAN
     Indication: HAEMODILUTION
     Dosage: 15 MG, UNK
     Route: 048
     Dates: start: 201404, end: 20150515
  4. DACOGEN [Suspect]
     Active Substance: DECITABINE
     Indication: CHRONIC MYELOMONOCYTIC LEUKAEMIA
     Dosage: 37.6 MG, UNK
     Route: 042
     Dates: start: 20150112, end: 20150116
  5. TAVANIC [Concomitant]
     Active Substance: LEVOFLOXACIN
     Indication: PRODUCT USED FOR UNKNOWN INDICATION
     Dosage: 500 MG, UNK
     Route: 048
     Dates: start: 20150515

REACTIONS (3)
  - General physical health deterioration [Fatal]
  - Dyspnoea [Fatal]
  - Sepsis [Fatal]

NARRATIVE: CASE EVENT DATE: 20150519
